FAERS Safety Report 8620359-9 (Version None)
Quarter: 2012Q3

REPORT INFORMATION
  Report Type: 
  Country: None (occurrence: None)
  Receive Date: 20120824
  Receipt Date: 20120815
  Transmission Date: 20120928
  Serious: Yes (Hospitalization, Congenital Anomaly)
  Sender: FDA-Public Use
  Company Number: US-GLAXOSMITHKLINE-A0951259A

PATIENT
  Sex: Male
  Weight: 2.2 kg

DRUGS (9)
  1. ZANTAC [Concomitant]
  2. PAROXETINE HCL [Suspect]
     Indication: DEPRESSION
     Route: 064
  3. REGLAN [Concomitant]
  4. TYLENOL [Concomitant]
  5. PAXIL [Suspect]
     Indication: DEPRESSION
     Dosage: 20MG PER DAY
     Route: 064
     Dates: start: 20040330
  6. FIORICET [Concomitant]
     Dates: start: 20040712
  7. VITAMIN AND MINERAL PRENATAL SUPPLEMENT W/ FOLIC ACID CAP [Concomitant]
  8. PAXIL CR [Suspect]
     Indication: DEPRESSION
     Route: 064
  9. IRON SULFATETHIAMIN COMPOUND TAB [Concomitant]

REACTIONS (5)
  - FOETAL EXPOSURE DURING PREGNANCY [None]
  - CONGENITAL AORTIC VALVE INCOMPETENCE [None]
  - VENTRICULAR SEPTAL DEFECT [None]
  - ATRIAL SEPTAL DEFECT [None]
  - COARCTATION OF THE AORTA [None]
